FAERS Safety Report 26191264 (Version 1)
Quarter: 2025Q4

REPORT INFORMATION
  Report Type: Spontaneous
  Country: US (occurrence: None)
  Receive Date: 20251223
  Receipt Date: 20251223
  Transmission Date: 20260118
  Serious: Yes (Hospitalization)
  Sender: FDA-CTU
  Company Number: None

PATIENT
  Sex: Male

DRUGS (1)
  1. CAPECITABINE [Suspect]
     Active Substance: CAPECITABINE
     Indication: Oesophageal carcinoma
     Dosage: OTHER FREQUENCY : MOUTH TWICE DAILY ON DAYS 1-14 EVERY 21 DAYS;
     Route: 048
     Dates: start: 20251210

REACTIONS (3)
  - Hospitalisation [None]
  - Therapy interrupted [None]
  - Product availability issue [None]
